FAERS Safety Report 8811950 (Version 1)
Quarter: 2012Q4

REPORT INFORMATION
  Report Type: 
  Country: DK (occurrence: FR)
  Receive Date: 20120927
  Receipt Date: 20120927
  Transmission Date: 20130627
  Serious: Yes (Hospitalization)
  Sender: FDA-Public Use
  Company Number: FR-FRI-1000038985

PATIENT
  Age: 72 Year
  Sex: Male

DRUGS (3)
  1. CITALOPRAM [Suspect]
     Indication: FAILURE TO THRIVE
     Dosage: 10 mg
     Route: 048
     Dates: start: 20120627, end: 20120717
  2. OFLOCET [Suspect]
     Indication: OSTEITIS
     Dosage: 400 mg
     Route: 048
     Dates: start: 20120511, end: 20120717
  3. RIFADINE [Suspect]
     Indication: OSTEITIS
     Dosage: 1800 mg
     Route: 048
     Dates: start: 20120511, end: 20120717

REACTIONS (1)
  - Status epilepticus [Recovered/Resolved]
